FAERS Safety Report 10558277 (Version 1)
Quarter: 2014Q4

REPORT INFORMATION
  Report Type: Spontaneous
  Country: US (occurrence: US)
  Receive Date: 20141031
  Receipt Date: 20141031
  Transmission Date: 20150529
  Serious: No
  Sender: FDA-Public Use
  Company Number: US-BAYER-2014-155278

PATIENT
  Age: 66 Year
  Sex: Female

DRUGS (1)
  1. CLIMARA [Suspect]
     Active Substance: ESTRADIOL
     Indication: MENOPAUSAL SYMPTOMS
     Dosage: 0.025 MG, UNK
     Route: 062
     Dates: start: 20141006

REACTIONS (3)
  - Drug ineffective [None]
  - Hot flush [None]
  - Insomnia [None]
